FAERS Safety Report 20108353 (Version 1)
Quarter: 2021Q4

REPORT INFORMATION
  Report Type: Spontaneous
  Country: IN (occurrence: IN)
  Receive Date: 20211124
  Receipt Date: 20211124
  Transmission Date: 20220303
  Serious: Yes (Death, Life-Threatening, Hospitalization)
  Sender: FDA-Public Use
  Company Number: IN-MYLANLABS-2021M1086654

PATIENT
  Age: 60 Year
  Sex: Male

DRUGS (8)
  1. HEPARIN [Suspect]
     Active Substance: HEPARIN SODIUM
     Indication: Anticoagulant therapy
     Dosage: 400 INTERNATIONAL UNIT/KILOGRAM, DURING CARDIOPULMONARY BYPASS
     Route: 065
     Dates: start: 20201102
  2. HEPARIN [Suspect]
     Active Substance: HEPARIN SODIUM
     Dosage: AT THE TIME OF REHEPARINIZING
     Route: 065
  3. PROTAMINE [Suspect]
     Active Substance: PROTAMINE
     Indication: Heparin neutralisation therapy
     Dosage: ADMINISTERED 60% (150MG) DOSE THROUGH THE PERIPHERAL (CEPHALIC) VEIN
     Route: 042
     Dates: start: 20201102
  4. PROTAMINE [Suspect]
     Active Substance: PROTAMINE
     Dosage: 25 MILLIGRAM
     Route: 042
     Dates: start: 20201102
  5. CLOPIDOGREL [Suspect]
     Active Substance: CLOPIDOGREL BISULFATE
     Indication: Antiplatelet therapy
     Dosage: UNK
     Route: 065
  6. VASOPRESSIN [Concomitant]
     Active Substance: VASOPRESSIN
     Indication: Hypotension
     Dosage: UNK
     Route: 065
     Dates: start: 20201102
  7. NOREPINEPHRINE [Concomitant]
     Active Substance: NOREPINEPHRINE
     Indication: Haemodynamic instability
     Dosage: UNK
     Route: 065
     Dates: start: 20201102
  8. GLIMEPIRIDE [Concomitant]
     Active Substance: GLIMEPIRIDE
     Indication: Diabetes mellitus
     Dosage: UNK
     Route: 065

REACTIONS (2)
  - Coagulopathy [Fatal]
  - Haemorrhage [Recovering/Resolving]

NARRATIVE: CASE EVENT DATE: 20201102
